FAERS Safety Report 5410086-3 (Version None)
Quarter: 2007Q3

REPORT INFORMATION
  Report Type: 
  Country: None (occurrence: None)
  Receive Date: 20070809
  Receipt Date: 20070731
  Transmission Date: 20080115
  Serious: Yes (Other)
  Sender: FDA-Public Use
  Company Number: GB-AMGEN-US237469

PATIENT
  Age: 58 Year
  Sex: Female

DRUGS (14)
  1. ENBREL [Suspect]
     Indication: RHEUMATOID ARTHRITIS
     Dosage: 50MG (FREQUENCY NOT STATED)
     Dates: start: 20060101
  2. TRIMEPRAZINE TAB [Concomitant]
  3. AMLODIPINE [Concomitant]
  4. ATENOLOL [Concomitant]
  5. BENDROFLUMETHIAZIDE [Concomitant]
  6. TRAMADOL HCL [Concomitant]
     Dosage: 50MG (FREQUENCY NOT STATED)
  7. DOSULEPIN [Concomitant]
  8. FOLIC ACID [Concomitant]
  9. METHOTREXATE [Concomitant]
  10. OMEPRAZOLE [Concomitant]
  11. PREDNISOLONE [Concomitant]
     Dosage: UNKNOWN
  12. RALOXIFENE HCL [Concomitant]
  13. ADCAL [Concomitant]
  14. CODEINE PHOSPHATE AND ACETAMINOPHEN [Concomitant]
     Dosage: UNKNOWN

REACTIONS (1)
  - DEAFNESS [None]
